FAERS Safety Report 5986071-X (Version None)
Quarter: 2008Q4

REPORT INFORMATION
  Report Type: 
  Country: None (occurrence: None)
  Receive Date: 20081205
  Receipt Date: 20081205
  Transmission Date: 20090506
  Serious: Yes (Life-Threatening, Hospitalization)
  Sender: FDA-Public Use
  Company Number: None

PATIENT
  Age: 16 Year
  Sex: Female
  Weight: 68.0396 kg

DRUGS (1)
  1. DEPO-PROVERA [Suspect]
     Indication: CONTRACEPTION
     Dosage: ?? ONCE SUBDERMAL
     Route: 059
     Dates: start: 20080505, end: 20080505

REACTIONS (2)
  - DEPRESSION [None]
  - SUICIDE ATTEMPT [None]
